FAERS Safety Report 20377650 (Version 4)
Quarter: 2022Q1

REPORT INFORMATION
  Report Type: Report from Study
  Country: CA (occurrence: CA)
  Receive Date: 20220126
  Receipt Date: 20220329
  Transmission Date: 20220423
  Serious: Yes (Other)
  Sender: FDA-Public Use
  Company Number: CA-ABBVIE-22K-028-4245898-00

PATIENT
  Age: 49 Year
  Sex: Female

DRUGS (2)
  1. HUMIRA [Suspect]
     Active Substance: ADALIMUMAB
     Indication: Ankylosing spondylitis
     Route: 058
     Dates: start: 20201102
  2. METHOTREXATE [Concomitant]
     Active Substance: METHOTREXATE
     Indication: Product used for unknown indication

REACTIONS (29)
  - Nervous system disorder [Not Recovered/Not Resolved]
  - Multiple sclerosis [Unknown]
  - Speech disorder [Unknown]
  - Balance disorder [Unknown]
  - Aphonia [Unknown]
  - Defaecation urgency [Unknown]
  - Sneezing [Unknown]
  - Spinal instability [Unknown]
  - Post procedural complication [Unknown]
  - Joint range of motion decreased [Unknown]
  - Nystagmus [Unknown]
  - Memory impairment [Not Recovered/Not Resolved]
  - Psychomotor hyperactivity [Unknown]
  - Disturbance in attention [Unknown]
  - Dysstasia [Unknown]
  - Musculoskeletal stiffness [Unknown]
  - Hypoaesthesia [Unknown]
  - Hyperaesthesia [Unknown]
  - Visual impairment [Unknown]
  - Nerve compression [Unknown]
  - Headache [Unknown]
  - Injection site discomfort [Unknown]
  - Hypersensitivity [Unknown]
  - Neuralgia [Unknown]
  - Dysphagia [Unknown]
  - Muscular weakness [Unknown]
  - Injection site pain [Unknown]
  - Disturbance in attention [Unknown]
  - Pain [Recovered/Resolved]

NARRATIVE: CASE EVENT DATE: 20210801
